FAERS Safety Report 13992621 (Version 2)
Quarter: 2017Q4

REPORT INFORMATION
  Report Type: Spontaneous
  Country: US (occurrence: US)
  Receive Date: 20170920
  Receipt Date: 20171123
  Transmission Date: 20180321
  Serious: No
  Sender: FDA-Public Use
  Company Number: US-JNJFOC-20170708583

PATIENT
  Age: 9 Year
  Sex: Female

DRUGS (9)
  1. PATRIOT RISPERIDONE [Suspect]
     Active Substance: RISPERIDONE
     Indication: AUTISM SPECTRUM DISORDER
     Dosage: 1 MG IN THE MORNING AND 0.75 MG AT BEDTIME
     Route: 048
     Dates: start: 20170711
  2. CLONIDINE. [Concomitant]
     Active Substance: CLONIDINE
     Indication: AUTISM SPECTRUM DISORDER
     Route: 065
     Dates: start: 20160101
  3. PATRIOT RISPERIDONE [Suspect]
     Active Substance: RISPERIDONE
     Indication: AUTISM SPECTRUM DISORDER
     Dosage: TITRATION TO HIGHER DOSES
     Route: 048
  4. RISPERDAL [Suspect]
     Active Substance: RISPERIDONE
     Indication: AUTISM SPECTRUM DISORDER
     Route: 048
  5. CLONIDINE. [Concomitant]
     Active Substance: CLONIDINE
     Indication: BIPOLAR DISORDER
     Route: 065
     Dates: start: 20160101
  6. RISPERDAL [Suspect]
     Active Substance: RISPERIDONE
     Indication: BIPOLAR DISORDER
     Route: 048
  7. RISPERDAL [Suspect]
     Active Substance: RISPERIDONE
     Indication: BIPOLAR DISORDER
     Dosage: DOSE TITRATIONS??DOSE: 1ML IN MORNING AND 0.75 ML HOUR OF SLEEP
     Route: 048
     Dates: start: 20160101
  8. RISPERDAL [Suspect]
     Active Substance: RISPERIDONE
     Indication: AUTISM SPECTRUM DISORDER
     Dosage: DOSE TITRATIONS??DOSE: 1ML IN MORNING AND 0.75 ML HOUR OF SLEEP
     Route: 048
     Dates: start: 20160101
  9. PATRIOT RISPERIDONE [Suspect]
     Active Substance: RISPERIDONE
     Indication: AUTISM SPECTRUM DISORDER
     Route: 048
     Dates: start: 201612

REACTIONS (2)
  - Product storage error [Unknown]
  - Drug effect decreased [Unknown]

NARRATIVE: CASE EVENT DATE: 201612
